FAERS Safety Report 4606086-3 (Version None)
Quarter: 2005Q2

REPORT INFORMATION
  Report Type: 
  Country: None (occurrence: None)
  Receive Date: 20050303
  Receipt Date: 20041111
  Transmission Date: 20051028
  Serious: No
  Sender: FDA-Public Use
  Company Number: 200420996BWH

PATIENT
  Sex: Male

DRUGS (2)
  1. LEVITRA [Suspect]
  2. BETA-BLOCKER [Concomitant]

REACTIONS (1)
  - TACHYCARDIA [None]
